FAERS Safety Report 8357447-0 (Version None)
Quarter: 2012Q1

REPORT INFORMATION
  Report Type: 
  Country: None (occurrence: None)
  Receive Date: 20120315
  Receipt Date: 20110125
  Transmission Date: 20120608
  Serious: Yes (Other)
  Sender: FDA-Public Use
  Company Number: PHHY2011US07284

PATIENT
  Sex: Female

DRUGS (8)
  1. BACLOFEN [Concomitant]
  2. LOVAZA [Concomitant]
  3. VITAMIN D [Concomitant]
  4. GILENYA [Suspect]
     Indication: MULTIPLE SCLEROSIS
     Dosage: 0.5 MG DAILY, ORAL
     Route: 048
     Dates: start: 20110104, end: 20110127
  5. LECITHIN (LECITHIN) [Concomitant]
  6. MACROBID [Concomitant]
  7. COQ10 (UBIDECARENONE) [Concomitant]
  8. COLOSTRUM (COLOSTRUM) [Concomitant]

REACTIONS (2)
  - GENITAL HERPES [None]
  - VULVOVAGINAL DISCOMFORT [None]
